FAERS Safety Report 8468748 (Version 16)
Quarter: 2012Q4

REPORT INFORMATION
  Report Type: 
  Country: US (occurrence: US)
  Receive Date: 20120320
  Receipt Date: 20121031
  Transmission Date: 20130627
  Serious: Yes (Hospitalization, Other)
  Sender: FDA-Public Use
  Company Number: US-ASTRAZENECA-2011SE32251

PATIENT
  Age: 67 Year
  Sex: Female
  Weight: 111.6 kg

DRUGS (26)
  1. NEXIUM [Suspect]
     Indication: GASTROOESOPHAGEAL REFLUX DISEASE
     Dosage: TWICE A DAY
     Route: 048
  2. NEXIUM [Suspect]
     Indication: GASTROOESOPHAGEAL REFLUX DISEASE
     Dosage: TWICE A DAY
     Route: 048
  3. NEXIUM [Suspect]
     Indication: GASTROOESOPHAGEAL REFLUX DISEASE
     Dosage: 1 TIME A DAY
     Route: 048
     Dates: start: 20010909, end: 2002
  4. NEXIUM [Suspect]
     Indication: GASTROOESOPHAGEAL REFLUX DISEASE
     Dosage: 1 TIME A DAY
     Route: 048
     Dates: start: 20010909, end: 2002
  5. NEXIUM [Suspect]
     Indication: GASTROOESOPHAGEAL REFLUX DISEASE
     Route: 048
     Dates: start: 20020613
  6. NEXIUM [Suspect]
     Indication: GASTROOESOPHAGEAL REFLUX DISEASE
     Route: 048
     Dates: start: 20020613
  7. NEXIUM [Suspect]
     Indication: GASTROOESOPHAGEAL REFLUX DISEASE
     Dosage: 2 TIMES A DAY
     Route: 048
     Dates: start: 20021102, end: 2012
  8. NEXIUM [Suspect]
     Indication: GASTROOESOPHAGEAL REFLUX DISEASE
     Dosage: 2 TIMES A DAY
     Route: 048
     Dates: start: 20021102, end: 2012
  9. NEXIUM [Suspect]
     Indication: GASTROOESOPHAGEAL REFLUX DISEASE
     Route: 048
     Dates: start: 20070730
  10. NEXIUM [Suspect]
     Indication: GASTROOESOPHAGEAL REFLUX DISEASE
     Route: 048
     Dates: start: 20070730
  11. NEXIUM [Suspect]
     Indication: GASTROOESOPHAGEAL REFLUX DISEASE
     Route: 048
     Dates: start: 20080924
  12. NEXIUM [Suspect]
     Indication: GASTROOESOPHAGEAL REFLUX DISEASE
     Route: 048
     Dates: start: 20080924
  13. ACIPHEX [Concomitant]
     Dosage: 1 TIME A DAY/20 MG QD BEFORE BREAKFAST
     Dates: start: 20020613
  14. ZANTAC [Concomitant]
     Dosage: 1 TIME FOR 3 WEEKS
     Dates: start: 1993
  15. CALCIUM [Concomitant]
     Indication: OSTEOPOROSIS
  16. VITAMIN D [Concomitant]
     Indication: OSTEOPOROSIS
  17. BENICAR [Concomitant]
     Indication: BLOOD PRESSURE
     Dates: start: 20070730
  18. BENICAR [Concomitant]
     Indication: BLOOD PRESSURE
     Dates: start: 20080729
  19. BENICAR [Concomitant]
     Indication: BLOOD PRESSURE
     Dates: start: 20110216
  20. HYDROCODONE [Concomitant]
  21. TYLENOL [Concomitant]
     Indication: ARTHRITIS
     Dates: start: 20090312
  22. PREMPRO [Concomitant]
     Dates: start: 20020613
  23. VICODIN [Concomitant]
  24. VITAMINS [Concomitant]
  25. PHAZYM [Concomitant]
     Dosage: POST MEALS
  26. POTASSIUM [Concomitant]
     Dosage: TWO TIMES A DAY
     Dates: start: 20070730

REACTIONS (17)
  - Wrist fracture [Unknown]
  - Spinal fracture [Unknown]
  - Foot fracture [Unknown]
  - Upper limb fracture [Unknown]
  - Ankle fracture [Unknown]
  - Cervical spinal stenosis [Unknown]
  - Lumbar radiculopathy [Unknown]
  - Cervicobrachial syndrome [Unknown]
  - Osteoporosis [Unknown]
  - Arthritis [Unknown]
  - Calcium deficiency [Unknown]
  - Vitamin D deficiency [Unknown]
  - Ligament sprain [Unknown]
  - Meniscus injury [Unknown]
  - Osteoarthritis [Unknown]
  - Spondylitis [Unknown]
  - Demyelinating polyneuropathy [Unknown]
